FAERS Safety Report 10088963 (Version 2)
Quarter: 2014Q2

REPORT INFORMATION
  Report Type: Spontaneous
  Country: NG (occurrence: NG)
  Receive Date: 20140421
  Receipt Date: 20140424
  Transmission Date: 20141212
  Serious: Yes (Death)
  Sender: FDA-Public Use
  Company Number: PHHY2014NG047580

PATIENT
  Age: 15 Year
  Sex: Male

DRUGS (2)
  1. NEORAL [Suspect]
     Indication: LUPUS NEPHRITIS
     Dosage: 250 MG, DAILY
     Route: 048
     Dates: start: 20140317
  2. PREDNISOLONE [Concomitant]
     Dosage: UNK UKN, UNK

REACTIONS (7)
  - Haemoptysis [Fatal]
  - Anaemia [Fatal]
  - Pallor [Fatal]
  - Respiratory distress [Fatal]
  - Cough [Fatal]
  - Blood count abnormal [Unknown]
  - Pyrexia [Unknown]
